FAERS Safety Report 25069263 (Version 1)
Quarter: 2025Q1

REPORT INFORMATION
  Report Type: Spontaneous
  Country: US (occurrence: None)
  Receive Date: 20250312
  Receipt Date: 20250312
  Transmission Date: 20250408
  Serious: No
  Sender: FDA-CTU
  Company Number: None

PATIENT
  Age: 91 Year
  Sex: Male
  Weight: 61.23 kg

DRUGS (19)
  1. QUETIAPINE [Suspect]
     Active Substance: QUETIAPINE
     Indication: Insomnia
     Dates: start: 20241030, end: 20250126
  2. VALIUM [Suspect]
     Active Substance: DIAZEPAM
  3. BUPROPION [Concomitant]
     Active Substance: BUPROPION
  4. CITALOPRAM [Concomitant]
     Active Substance: CITALOPRAM
  5. Miatazapine [Concomitant]
  6. IRON 324 mg [Concomitant]
  7. ASPIRIN [Concomitant]
     Active Substance: ASPIRIN
  8. MULTI-VITAMIN [Concomitant]
     Active Substance: .ALPHA.-TOCOPHEROL ACETATE, DL-\ASCORBIC ACID\CYANOCOBALAMIN\FLUORIDE ION\FOLIC ACID\NIACIN\PYRIDOXI
  9. Vita C 1000mg [Concomitant]
  10. Fish Oil 1000 mG [Concomitant]
  11. Yogart Pemobicaly [Concomitant]
  12. Levothyroxine 50mcg am [Concomitant]
  13. Vita D3 25mcg [Concomitant]
  14. FINASTERIDE [Concomitant]
     Active Substance: FINASTERIDE
  15. Alfozosin 10mg [Concomitant]
  16. Simvastatin 1/2 20mg [Concomitant]
  17. Stool Softner [Concomitant]
  18. Rt Eye Wetting Drops [Concomitant]
  19. Left Eye Sodium Chloriderone [Concomitant]

REACTIONS (3)
  - Myalgia [None]
  - Muscle spasms [None]
  - Pain [None]

NARRATIVE: CASE EVENT DATE: 20241030
